FAERS Safety Report 4532266-1 (Version None)
Quarter: 2004Q4

REPORT INFORMATION
  Report Type: 
  Country: None (occurrence: None)
  Receive Date: 20041217
  Receipt Date: 20041206
  Transmission Date: 20050328
  Serious: Yes (Other)
  Sender: FDA-Public Use
  Company Number: 200415883BCC

PATIENT
  Age: 63 Year
  Sex: Female
  Weight: 64.4108 kg

DRUGS (3)
  1. ALEVE [Suspect]
     Indication: PAIN
     Dosage: 660 MG, PRN, ORAL
     Route: 048
     Dates: start: 20041129, end: 20041202
  2. LISINOPRIL [Concomitant]
  3. LOVASTATIN [Concomitant]

REACTIONS (1)
  - BLOOD PRESSURE INCREASED [None]
